FAERS Safety Report 10703443 (Version 7)
Quarter: 2017Q3

REPORT INFORMATION
  Report Type: Spontaneous
  Country: KR (occurrence: KR)
  Receive Date: 20150112
  Receipt Date: 20170714
  Transmission Date: 20171127
  Serious: Yes (Hospitalization)
  Sender: FDA-Public Use
  Company Number: KR-009507513-1501KOR003059

PATIENT
  Age: 64 Year
  Sex: Male
  Weight: 64 kg

DRUGS (16)
  1. MUCOSTA [Concomitant]
     Active Substance: REBAMIPIDE
     Indication: GASTRITIS PROPHYLAXIS
     Dosage: 100 MG, TID
     Route: 048
     Dates: start: 20141201
  2. ANYCOUGH [Concomitant]
     Active Substance: THEOBROMINE
     Indication: PROPHYLAXIS
     Dosage: 300 MG, BID
     Route: 048
     Dates: start: 20141124
  3. WINUF PERI [Concomitant]
     Indication: PROPHYLAXIS
     Dosage: 1085 ML, ONCE
     Route: 042
     Dates: start: 20141219, end: 20141219
  4. MOTILIUM M [Concomitant]
     Indication: PROPHYLAXIS OF NAUSEA AND VOMITING
     Dosage: 10 MG, TID
     Route: 048
     Dates: start: 20141217, end: 20141223
  5. SYNATURA [Concomitant]
     Indication: PROPHYLAXIS
     Dosage: 15 ML, BID
     Route: 048
     Dates: start: 20141124
  6. SYNTHROID [Concomitant]
     Active Substance: LEVOTHYROXINE SODIUM
     Indication: HYPOTHYROIDISM
     Dosage: 0.1 MG, QD
     Route: 048
     Dates: start: 20141121
  7. CHLORPHENIRAMINE MALEATE. [Concomitant]
     Active Substance: CHLORPHENIRAMINE MALEATE
     Indication: PROPHYLAXIS
     Dosage: 4 MG, ONCE
     Route: 042
     Dates: start: 20141217, end: 20141217
  8. EMEND (FOSAPREPITANT DIMEGLUMINE) [Suspect]
     Active Substance: FOSAPREPITANT DIMEGLUMINE
     Indication: PROPHYLAXIS OF NAUSEA AND VOMITING
     Dosage: 150 MG, ONCE
     Route: 042
     Dates: start: 20141217, end: 20141217
  9. DEXAMETHASONE SODIUM PHOSPHATE. [Concomitant]
     Active Substance: DEXAMETHASONE SODIUM PHOSPHATE
     Indication: PREMEDICATION
     Dosage: 10 MG, ONCE. STRENGTH: 5 MG/ML
     Route: 042
     Dates: start: 20141217, end: 20141217
  10. HEXAMEDIN [Concomitant]
     Indication: OROPHARYNGEAL PAIN
     Dosage: ORAL GARGLE ONCE. STRENGTH: 1 MG/ML
     Route: 002
     Dates: start: 20141219
  11. RABIET [Concomitant]
     Indication: GASTRITIS PROPHYLAXIS
     Dosage: 20 MG, QD
     Route: 048
     Dates: start: 20141122
  12. ALOXI [Concomitant]
     Active Substance: PALONOSETRON HYDROCHLORIDE
     Indication: PREMEDICATION
     Dosage: 0.25 MG, ONCE
     Route: 042
     Dates: start: 20141217, end: 20141217
  13. MANNITOL. [Concomitant]
     Active Substance: MANNITOL
     Indication: PROPHYLAXIS
     Dosage: 250 ML, ONCE. STRENGTH:15% 250ML
     Route: 042
     Dates: start: 20141217, end: 20141217
  14. PLATOSIN [Concomitant]
     Active Substance: CISPLATIN
     Indication: HYPOPHARYNGEAL CANCER
     Dosage: 129.75 MG, ONCE. STRENGTH: 0.1% 50ML
     Route: 042
     Dates: start: 20141217, end: 20141217
  15. SERACTIL [Concomitant]
     Active Substance: DEXIBUPROFEN
     Indication: NECK PAIN
     Dosage: 300 MG, TID
     Route: 048
     Dates: start: 20141205
  16. LORAVAN [Concomitant]
     Active Substance: LORAZEPAM
     Indication: PROPHYLAXIS OF NAUSEA AND VOMITING
     Dosage: 0.5 MG, BID
     Route: 048
     Dates: start: 20141217, end: 20141223

REACTIONS (3)
  - Dysphagia [Not Recovered/Not Resolved]
  - Dyspnoea [Recovered/Resolved]
  - Neck pain [Recovered/Resolved]

NARRATIVE: CASE EVENT DATE: 20141219
